FAERS Safety Report 7735657-0 (Version None)
Quarter: 2011Q3

REPORT INFORMATION
  Report Type: 
  Country: None (occurrence: None)
  Receive Date: 20110907
  Receipt Date: 20110825
  Transmission Date: 20111222
  Serious: Yes (Hospitalization, Other)
  Sender: FDA-Public Use
  Company Number: CA-GENENTECH-316134

PATIENT
  Sex: Male

DRUGS (3)
  1. XOLAIR [Suspect]
     Dosage: UNK
     Dates: start: 20110224
  2. PREDNISONE [Concomitant]
     Indication: PRODUCT USED FOR UNKNOWN INDICATION
  3. XOLAIR [Suspect]
     Indication: ASTHMA
     Dosage: 300 MG, 1/MONTH
     Route: 058
     Dates: start: 20061109

REACTIONS (7)
  - NASOPHARYNGITIS [None]
  - LIMB DISCOMFORT [None]
  - NASAL CONGESTION [None]
  - LOWER RESPIRATORY TRACT INFECTION VIRAL [None]
  - HYPERSENSITIVITY [None]
  - DYSPNOEA [None]
  - RHINORRHOEA [None]
